FAERS Safety Report 5592536-5 (Version None)
Quarter: 2008Q1

REPORT INFORMATION
  Report Type: 
  Country: None (occurrence: None)
  Receive Date: 20080112
  Receipt Date: 20071226
  Transmission Date: 20080703
  Serious: Yes (Other)
  Sender: FDA-Public Use
  Company Number: 060004M07GBR

PATIENT
  Age: 40 Year
  Sex: Female

DRUGS (2)
  1. CLOMIPHENE CITRATE [Suspect]
     Indication: INFERTILITY
     Dosage: 100 MG, 1 IN 1 DAYS, ORAL
     Route: 048
     Dates: start: 20070501
  2. METOFORMIN (METFORMIN /00082701/) [Suspect]
     Indication: POLYCYSTIC OVARIES
     Dosage: 500 MG, 2 IN 1 DAYS, ORAL
     Route: 048
     Dates: start: 20070501, end: 20070601

REACTIONS (3)
  - ALOPECIA [None]
  - HEADACHE [None]
  - WEIGHT INCREASED [None]
